FAERS Safety Report 13693497 (Version 1)
Quarter: 2017Q2

REPORT INFORMATION
  Report Type: Spontaneous
  Country: US (occurrence: US)
  Receive Date: 20170626
  Receipt Date: 20170626
  Transmission Date: 20170830
  Serious: Yes (Other)
  Sender: FDA-Public Use
  Company Number: None

PATIENT
  Age: 62 Year
  Sex: Male
  Weight: 99 kg

DRUGS (4)
  1. FARXIGA [Suspect]
     Active Substance: DAPAGLIFLOZIN PROPANEDIOL
     Indication: GLUCOSE TOLERANCE IMPAIRED
     Dosage: ?          OTHER STRENGTH:MG;QUANTITY:1 TABLET(S);?
     Route: 048
     Dates: start: 20170607, end: 20170613
  2. QUESTRAN [Concomitant]
     Active Substance: CHOLESTYRAMINE
  3. LEVEMIR [Concomitant]
     Active Substance: INSULIN DETEMIR
  4. VIIBRYD [Concomitant]
     Active Substance: VILAZODONE HYDROCHLORIDE

REACTIONS (3)
  - Hypertension [None]
  - Dehydration [None]
  - Intraocular pressure increased [None]

NARRATIVE: CASE EVENT DATE: 20170612
